FAERS Safety Report 23037082 (Version 2)
Quarter: 2023Q4

REPORT INFORMATION
  Report Type: Other
  Country: US (occurrence: None)
  Receive Date: 20231006
  Receipt Date: 20231011
  Transmission Date: 20240110
  Serious: Yes (Death, Hospitalization)
  Sender: FDA-Public Use
  Company Number: US-ROCHE-3434020

PATIENT

DRUGS (2)
  1. TOCILIZUMAB [Suspect]
     Active Substance: TOCILIZUMAB
     Indication: COVID-19
     Route: 065
  2. REMDESIVIR [Concomitant]
     Active Substance: REMDESIVIR

REACTIONS (2)
  - Bacterial infection [Fatal]
  - Off label use [Fatal]
